FAERS Safety Report 23499322 (Version 1)
Quarter: 2024Q1

REPORT INFORMATION
  Report Type: Spontaneous
  Country: GB (occurrence: GB)
  Receive Date: 20240208
  Receipt Date: 20240208
  Transmission Date: 20240410
  Serious: Yes (Other)
  Sender: FDA-Public Use
  Company Number: GB-MHRA-MED-202401270034101430-DGCBV

PATIENT
  Sex: Male
  Weight: 79 kg

DRUGS (1)
  1. CLARITHROMYCIN [Suspect]
     Active Substance: CLARITHROMYCIN
     Indication: Lower respiratory tract infection
     Dosage: 500 MILLIGRAM
     Route: 065

REACTIONS (1)
  - Back pain [Not Recovered/Not Resolved]
